FAERS Safety Report 9974483 (Version 1)
Quarter: 2014Q1

REPORT INFORMATION
  Report Type: Report from Study
  Country: US (occurrence: US)
  Receive Date: 20140306
  Receipt Date: 20140306
  Transmission Date: 20141002
  Serious: No
  Sender: FDA-Public Use
  Company Number: US-ABBVIE-13P-163-1156413-00

PATIENT
  Sex: Male
  Weight: 87.17 kg

DRUGS (6)
  1. HUMIRA [Suspect]
     Indication: ANKYLOSING SPONDYLITIS
     Route: 058
     Dates: start: 2010
  2. SAW PALMETTO [Concomitant]
     Indication: PROSTATIC DISORDER
  3. ASPIRIN [Concomitant]
     Indication: PRODUCT USED FOR UNKNOWN INDICATION
  4. ANTIHISTAMINES [Concomitant]
     Indication: HYPERSENSITIVITY
  5. PROVERA [Concomitant]
     Indication: BREAST ENLARGEMENT
  6. ALDACTONE [Concomitant]
     Indication: BLOOD TESTOSTERONE INCREASED

REACTIONS (1)
  - Back pain [Not Recovered/Not Resolved]
